FAERS Safety Report 14122881 (Version 1)
Quarter: 2017Q4

REPORT INFORMATION
  Report Type: Spontaneous
  Country: US (occurrence: US)
  Receive Date: 20171025
  Receipt Date: 20171025
  Transmission Date: 20180321
  Serious: No
  Sender: FDA-Public Use
  Company Number: US-CELGENEUS-USA-20171006114

PATIENT
  Age: 42 Year
  Sex: Male

DRUGS (2)
  1. OTEZLA [Suspect]
     Active Substance: APREMILAST
     Indication: PSORIASIS
  2. OTEZLA [Suspect]
     Active Substance: APREMILAST
     Indication: PSORIATIC ARTHROPATHY
     Dosage: 10 OR 20MG
     Route: 048
     Dates: start: 20171009

REACTIONS (6)
  - Muscular weakness [Unknown]
  - Tendonitis [Unknown]
  - Arthralgia [Unknown]
  - Joint swelling [Unknown]
  - Fine motor skill dysfunction [Unknown]
  - Psoriasis [Unknown]

NARRATIVE: CASE EVENT DATE: 201710
